FAERS Safety Report 7760402-2 (Version None)
Quarter: 2011Q3

REPORT INFORMATION
  Report Type: 
  Country: None (occurrence: None)
  Receive Date: 20110919
  Receipt Date: 20110914
  Transmission Date: 20111222
  Serious: Yes (Hospitalization, Other)
  Sender: FDA-Public Use
  Company Number: PHHY2011DE82459

PATIENT

DRUGS (7)
  1. VITAMIN D [Concomitant]
     Indication: OSTEOPOROSIS
     Dosage: 880 IU, UNK
  2. ZOLEDRONOC ACID [Suspect]
     Dosage: 5 MG, YEARLY
     Route: 042
     Dates: start: 20110708
  3. METAMIZOL [Concomitant]
     Dosage: 500            3X1 TABLET
  4. CALCIUM CARBONATE [Concomitant]
     Indication: OSTEOPOROSIS
     Dosage: 1000 MG, UNK
  5. IMBUN [Concomitant]
     Indication: PROPHYLAXIS
     Dosage: 500 MG, UNK
     Dates: start: 20100527, end: 20100531
  6. NOVAMINSULFON [Concomitant]
     Dosage: 1-0-1
  7. ZOLEDRONOC ACID [Suspect]
     Indication: OSTEOPOROSIS
     Dosage: 5 MG, YEARLY
     Route: 042
     Dates: start: 20100527, end: 20100527

REACTIONS (2)
  - CONTUSION [None]
  - FALL [None]
